FAERS Safety Report 5065870-5 (Version None)
Quarter: 2006Q3

REPORT INFORMATION
  Report Type: 
  Country: None (occurrence: None)
  Receive Date: 20060728
  Receipt Date: 20060728
  Transmission Date: 20061208
  Serious: Yes (Hospitalization, Other)
  Sender: FDA-Public Use
  Company Number: None

PATIENT
  Age: 79 Year
  Sex: Female

DRUGS (12)
  1. KLONOPIN [Suspect]
     Indication: WRONG DRUG ADMINISTERED
     Dosage: 2 MG PO OTO
     Route: 048
  2. LITHIUM [Concomitant]
  3. REGLAN [Concomitant]
  4. CLONAZEPAM [Concomitant]
  5. COLACE [Concomitant]
  6. GLYCOLAX [Concomitant]
  7. COMBIVENT [Concomitant]
  8. GABAPENTIN [Concomitant]
  9. GENEBS [Concomitant]
  10. CYMBALTA [Concomitant]
  11. SYNTHROID [Concomitant]
  12. ASPIRIN [Concomitant]

REACTIONS (4)
  - MEDICATION ERROR [None]
  - MENTAL STATUS CHANGES [None]
  - SOMNOLENCE [None]
  - WRONG DRUG ADMINISTERED [None]
